FAERS Safety Report 10024067 (Version 4)
Quarter: 2014Q2

REPORT INFORMATION
  Report Type: Spontaneous
  Country: US (occurrence: US)
  Receive Date: 20140320
  Receipt Date: 20140527
  Transmission Date: 20141212
  Serious: Yes (Life-Threatening)
  Sender: FDA-Public Use
  Company Number: US-PFIZER INC-2014079169

PATIENT
  Age: 78 Year
  Sex: Male

DRUGS (7)
  1. AMIODARONE HCL [Suspect]
     Indication: ATRIAL FIBRILLATION
     Dosage: UNK
  2. WARFARIN [Interacting]
     Dosage: UNK
  3. SIMVASTATIN [Concomitant]
  4. METOPROLOL [Concomitant]
  5. TAMSULOSIN [Concomitant]
  6. FINASTERIDE [Concomitant]
  7. ASPIRIN [Concomitant]

REACTIONS (4)
  - Drug interaction [Unknown]
  - Hypothyroidism [Unknown]
  - Myxoedema coma [Recovering/Resolving]
  - Cardio-respiratory arrest [Recovered/Resolved]
